FAERS Safety Report 5597660-9 (Version None)
Quarter: 2008Q1

REPORT INFORMATION
  Report Type: 
  Country: None (occurrence: None)
  Receive Date: 20080116
  Receipt Date: 20080108
  Transmission Date: 20080703
  Serious: Yes (Other)
  Sender: FDA-Public Use
  Company Number: 2007SP007050

PATIENT
  Age: 44 Year
  Sex: Female

DRUGS (4)
  1. INTRON A [Suspect]
     Indication: HEPATITIS C
     Dosage: 1 MIU; ONCE; SC, 3 MIU; ONCE; SC, 5 MIU; ONCE; SC, 5 MIU; TIW; SC
     Route: 058
     Dates: start: 19951213, end: 19951219
  2. INTRON A [Suspect]
     Indication: HEPATITIS C
     Dosage: 1 MIU; ONCE; SC, 3 MIU; ONCE; SC, 5 MIU; ONCE; SC, 5 MIU; TIW; SC
     Route: 058
     Dates: start: 19951213, end: 19951219
  3. INTRON A [Suspect]
     Indication: HEPATITIS C
     Dosage: 1 MIU; ONCE; SC, 3 MIU; ONCE; SC, 5 MIU; ONCE; SC, 5 MIU; TIW; SC
     Route: 058
     Dates: start: 19951213, end: 19951219
  4. INTRON A [Suspect]
     Indication: HEPATITIS C
     Dosage: 1 MIU; ONCE; SC, 3 MIU; ONCE; SC, 5 MIU; ONCE; SC, 5 MIU; TIW; SC
     Route: 058
     Dates: start: 19951220, end: 19961115

REACTIONS (9)
  - ANOREXIA [None]
  - DISTURBANCE IN ATTENTION [None]
  - FATIGUE [None]
  - HYPERTHYROIDISM [None]
  - HYPOTHYROIDISM [None]
  - MENIERE'S DISEASE [None]
  - PYREXIA [None]
  - TRANSAMINASES INCREASED [None]
  - WEIGHT DECREASED [None]
